FAERS Safety Report 8096218-X (Version None)
Quarter: 2012Q1

REPORT INFORMATION
  Report Type: 
  Country: None (occurrence: None)
  Receive Date: 20120129
  Receipt Date: 20111230
  Transmission Date: 20120608
  Serious: No
  Sender: FDA-Public Use
  Company Number: US-ABBOTT-11P-163-0885728-00

PATIENT
  Sex: Female
  Weight: 90.8 kg

DRUGS (3)
  1. HUMIRA [Suspect]
     Dates: start: 20111214, end: 20111214
  2. HUMIRA [Suspect]
     Indication: PSORIASIS
     Dosage: STARTING DOSE.
     Dates: start: 20111207, end: 20111207
  3. HUMIRA [Suspect]
     Dates: start: 20111201

REACTIONS (4)
  - INJECTION SITE PAIN [None]
  - MENSTRUATION IRREGULAR [None]
  - PRURITUS [None]
  - CONTUSION [None]
